FAERS Safety Report 8800739 (Version 1)
Quarter: 2012Q4

REPORT INFORMATION
  Report Type: 
  Country: GB (occurrence: GB)
  Receive Date: 20120921
  Receipt Date: 20120921
  Transmission Date: 20130627
  Serious: Yes (Other)
  Sender: FDA-Public Use
  Company Number: GB-UCBSA-064451

PATIENT
  Age: 40 Year
  Sex: Female

DRUGS (2)
  1. CIMZIA [Suspect]
     Indication: RHEUMATOID ARTHRITIS
     Route: 058
     Dates: start: 20110331, end: 20110922
  2. MTX [Concomitant]
     Route: 048

REACTIONS (2)
  - Premature delivery [Unknown]
  - Pregnancy [Recovered/Resolved]
